FAERS Safety Report 6896980-5 (Version None)
Quarter: 2010Q3

REPORT INFORMATION
  Report Type: 
  Country: None (occurrence: None)
  Receive Date: 20100802
  Receipt Date: 20070428
  Transmission Date: 20110219
  Serious: Yes (Other)
  Sender: FDA-Public Use
  Company Number: US-PFIZER INC-2007007374

PATIENT
  Sex: Female
  Weight: 74.8 kg

DRUGS (8)
  1. LYRICA [Suspect]
     Indication: BACK DISORDER
     Dosage: TID: EVERY DAY
     Route: 048
     Dates: start: 20061201
  2. LYRICA [Suspect]
     Indication: PAIN IN EXTREMITY
  3. LYRICA [Suspect]
     Indication: LUMBAR RADICULOPATHY
  4. TRAZODONE [Concomitant]
  5. EFFEXOR [Concomitant]
  6. PREVACID [Concomitant]
  7. CRESTOR [Concomitant]
  8. VITAMINS [Concomitant]

REACTIONS (5)
  - DYSPEPSIA [None]
  - LUMBAR RADICULOPATHY [None]
  - NAUSEA [None]
  - PAIN IN EXTREMITY [None]
  - SENSATION OF FOREIGN BODY [None]
